FAERS Safety Report 7791463-2 (Version None)
Quarter: 2011Q4

REPORT INFORMATION
  Report Type: 
  Country: None (occurrence: None)
  Receive Date: 20111003
  Receipt Date: 20110922
  Transmission Date: 20120403
  Serious: Yes (Hospitalization)
  Sender: FDA-Public Use
  Company Number: US-US-EMD SERONO, INC.-7085139

PATIENT
  Sex: Female

DRUGS (2)
  1. REBIF [Suspect]
     Indication: MULTIPLE SCLEROSIS
     Route: 058
     Dates: start: 20110125
  2. UNSPECIFIED PAIN MEDICATION [Concomitant]

REACTIONS (5)
  - HEAD INJURY [None]
  - OEDEMA PERIPHERAL [None]
  - SWELLING FACE [None]
  - PAIN IN EXTREMITY [None]
  - GRAND MAL CONVULSION [None]
